FAERS Safety Report 5892857-2 (Version None)
Quarter: 2008Q3

REPORT INFORMATION
  Report Type: 
  Country: None (occurrence: None)
  Receive Date: 20080922
  Receipt Date: 20080922
  Transmission Date: 20090109
  Serious: No
  Sender: FDA-Public Use
  Company Number: None

PATIENT
  Age: 41 Year
  Sex: Male
  Weight: 83.9154 kg

DRUGS (1)
  1. CIPROFLOXACIN [Suspect]
     Indication: PROSTATITIS
     Dosage: ONE 500MG TABLET TWICE DAILY PO
     Route: 048
     Dates: start: 20070414, end: 20070511

REACTIONS (1)
  - TENDON RUPTURE [None]
